FAERS Safety Report 11563482 (Version 2)
Quarter: 2015Q4

REPORT INFORMATION
  Report Type: Report from Study
  Country: US (occurrence: US)
  Receive Date: 20150928
  Receipt Date: 20151013
  Transmission Date: 20160304
  Serious: Yes (Hospitalization)
  Sender: FDA-Public Use
  Company Number: US-BAYER-2015-409348

PATIENT
  Age: 54 Year
  Sex: Male

DRUGS (1)
  1. NEXAVAR [Suspect]
     Active Substance: SORAFENIB
     Indication: HEPATOCELLULAR CARCINOMA
     Dosage: 200 MG, BID
     Route: 048
     Dates: start: 20150821, end: 201509

REACTIONS (10)
  - Muscle spasms [None]
  - Unresponsive to stimuli [None]
  - Cough [None]
  - Headache [None]
  - Ammonia increased [None]
  - Confusional state [None]
  - Pruritus generalised [None]
  - Diarrhoea [None]
  - Pruritus [Not Recovered/Not Resolved]
  - Vomiting [None]

NARRATIVE: CASE EVENT DATE: 201508
